FAERS Safety Report 19684305 (Version 1)
Quarter: 2021Q3

REPORT INFORMATION
  Report Type: Spontaneous
  Country: US (occurrence: US)
  Receive Date: 20210810
  Receipt Date: 20210810
  Transmission Date: 20211014
  Serious: Yes (Death)
  Sender: FDA-Public Use
  Company Number: None

PATIENT

DRUGS (1)
  1. CINACALCET HCL 60MG TABLETS [Suspect]
     Active Substance: CINACALCET HYDROCHLORIDE

REACTIONS (1)
  - Death [None]
